FAERS Safety Report 24367774 (Version 1)
Quarter: 2024Q3

REPORT INFORMATION
  Report Type: Spontaneous
  Country: LU (occurrence: LU)
  Receive Date: 20240926
  Receipt Date: 20240926
  Transmission Date: 20241016
  Serious: Yes (Hospitalization)
  Sender: TEVA
  Company Number: None

PATIENT
  Age: 49 Year
  Sex: Female
  Weight: 58.7 kg

DRUGS (5)
  1. PACLITAXEL [Suspect]
     Active Substance: PACLITAXEL
     Indication: Breast cancer
     Dosage: TIME INTERVAL: CYCLICAL: DAY 15 OF 1ST COURSE OF CHEMOTHERAPY?PACLITAXEL TEVA
     Route: 042
     Dates: start: 20240904, end: 20240904
  2. ONDANSETRON [Concomitant]
     Active Substance: ONDANSETRON
     Indication: Chemotherapy side effect prophylaxis
     Dosage: TIME INTERVAL: TOTAL: DAY 15 OF 1ST COURSE OF CHEMOTHERAPY
     Route: 042
     Dates: start: 20240904, end: 20240904
  3. DEXCHLORPHENIRAMINE [Concomitant]
     Active Substance: DEXCHLORPHENIRAMINE
     Indication: Chemotherapy side effect prophylaxis
     Dosage: TIME INTERVAL: TOTAL: DAY 15 OF 1ST COURSE OF CHEMOTHERAPY
     Route: 042
     Dates: start: 20240904, end: 20240904
  4. CIMETIDINE [Concomitant]
     Active Substance: CIMETIDINE
     Indication: Chemotherapy side effect prophylaxis
     Dosage: TIME INTERVAL: TOTAL: DAY 15 OF 1ST COURSE OF CHEMOTHERAPY
     Route: 048
     Dates: start: 20240904, end: 20240904
  5. DEXAMETHASONE [Concomitant]
     Active Substance: DEXAMETHASONE
     Indication: Chemotherapy side effect prophylaxis
     Dosage: TIME INTERVAL: TOTAL: DAY 15 OF 1ST COURSE OF CHEMOTHERAPY
     Route: 042
     Dates: start: 20240904, end: 20240904

REACTIONS (1)
  - Infusion related reaction [Recovering/Resolving]

NARRATIVE: CASE EVENT DATE: 20240904
